FAERS Safety Report 15774348 (Version 1)
Quarter: 2018Q4

REPORT INFORMATION
  Report Type: Spontaneous
  Country: FR (occurrence: FR)
  Receive Date: 20181229
  Receipt Date: 20181229
  Transmission Date: 20190205
  Serious: Yes (Hospitalization)
  Sender: FDA-Public Use
  Company Number: FR-ACCORD-098767

PATIENT
  Age: 66 Year
  Sex: Male
  Weight: 81 kg

DRUGS (4)
  1. PREDNISONE. [Concomitant]
     Active Substance: PREDNISONE
     Indication: PREMEDICATION
     Route: 048
     Dates: start: 20171226, end: 20171226
  2. ZOPHREN [Concomitant]
     Active Substance: ONDANSETRON
     Indication: PREMEDICATION
     Route: 048
     Dates: start: 20171226, end: 20171231
  3. FLUOROURACIL. [Suspect]
     Active Substance: FLUOROURACIL
     Indication: ANAL CANCER
     Route: 042
     Dates: start: 20171226, end: 20171229
  4. AMETYCINE [Suspect]
     Active Substance: MITOMYCIN
     Indication: ANAL CANCER
     Route: 042
     Dates: start: 20171226, end: 20171226

REACTIONS (6)
  - Thrombocytopenia [Recovering/Resolving]
  - Confusional state [Recovering/Resolving]
  - Mucosal inflammation [Recovering/Resolving]
  - Dihydropyrimidine dehydrogenase deficiency [Not Recovered/Not Resolved]
  - Diarrhoea [Recovering/Resolving]
  - Renal failure [Recovering/Resolving]

NARRATIVE: CASE EVENT DATE: 20180103
